FAERS Safety Report 25904997 (Version 1)
Quarter: 2025Q4

REPORT INFORMATION
  Report Type: Spontaneous
  Country: EU (occurrence: EU)
  Receive Date: 20251010
  Receipt Date: 20251010
  Transmission Date: 20260117
  Serious: Yes (Other)
  Sender: Onesource Specialty Pharma
  Company Number: EU-STRIDES ARCOLAB LIMITED-2025OS000903

PATIENT
  Age: 2 Decade
  Sex: Female
  Weight: 34 kg

DRUGS (12)
  1. ETOPOSIDE [Suspect]
     Active Substance: ETOPOSIDE
     Indication: Ewing^s sarcoma
     Dosage: 3 CYCLES, VIDE
     Route: 065
     Dates: start: 202101, end: 202103
  2. ETOPOSIDE [Suspect]
     Active Substance: ETOPOSIDE
     Dosage: VDC/IE
     Route: 065
  3. VINCRISTINE [Suspect]
     Active Substance: VINCRISTINE
     Indication: Ewing^s sarcoma
     Dosage: 3 CYCLES, VIDE
     Route: 065
     Dates: start: 202101, end: 202103
  4. VINCRISTINE [Suspect]
     Active Substance: VINCRISTINE
     Dosage: VDC/IE
     Route: 065
  5. IFOSFAMIDE [Suspect]
     Active Substance: IFOSFAMIDE
     Indication: Ewing^s sarcoma
     Dosage: 3 CYCLES,VIDE
     Route: 065
     Dates: start: 202101, end: 202103
  6. IFOSFAMIDE [Suspect]
     Active Substance: IFOSFAMIDE
     Dosage: VDC/IE
     Route: 065
  7. DOXORUBICIN [Suspect]
     Active Substance: DOXORUBICIN
     Indication: Ewing^s sarcoma
     Dosage: 3 CYCLES, VIDE
     Route: 065
     Dates: start: 202101, end: 202103
  8. DOXORUBICIN [Suspect]
     Active Substance: DOXORUBICIN
     Dosage: VDC/IE
     Route: 065
  9. CYCLOPHOSPHAMIDE [Suspect]
     Active Substance: CYCLOPHOSPHAMIDE
     Indication: Ewing^s sarcoma
     Dosage: VDC/IE
     Route: 065
  10. DEXAMETHASONE [Concomitant]
     Active Substance: DEXAMETHASONE
     Indication: Reduction of increased intracranial pressure
     Dosage: 8 MILLIGRAM, TID
     Route: 065
  11. DEXAMETHASONE [Concomitant]
     Active Substance: DEXAMETHASONE
     Dosage: DOSAGE WAS SUBSEQUENTLY TAPERED
     Route: 065
  12. GRANULOCYTE COLONY-STIMULATING FACTOR NOS [Concomitant]
     Active Substance: GRANULOCYTE COLONY-STIMULATING FACTOR NOS
     Indication: Product used for unknown indication
     Dosage: UNK
     Route: 065

REACTIONS (7)
  - Pancytopenia [Unknown]
  - Tumour haemorrhage [Unknown]
  - Epilepsy [Unknown]
  - Therapy partial responder [Unknown]
  - Headache [Unknown]
  - Refusal of treatment by patient [Unknown]
  - Off label use [Unknown]
